FAERS Safety Report 16372568 (Version 12)
Quarter: 2020Q1

REPORT INFORMATION
  Report Type: Report from Study
  Country: US (occurrence: US)
  Receive Date: 20190530
  Receipt Date: 20200227
  Transmission Date: 20200409
  Serious: Yes (Life-Threatening, Other)
  Sender: FDA-Public Use
  Company Number: US-TESARO-2019-TSO01871-US

PATIENT
  Age: 64 Year
  Sex: Female

DRUGS (9)
  1. NIRAPARIB [Suspect]
     Active Substance: NIRAPARIB
     Dosage: 200 MG, QD
     Route: 048
     Dates: start: 20190621, end: 20190909
  2. OXYBUTYNIN CHLORIDE. [Concomitant]
     Active Substance: OXYBUTYNIN CHLORIDE
     Indication: PRODUCT USED FOR UNKNOWN INDICATION
     Dosage: UNK
  3. NIRAPARIB [Suspect]
     Active Substance: NIRAPARIB
     Dosage: 100 MG, QD
     Route: 048
     Dates: start: 20190913
  4. NIRAPARIB [Suspect]
     Active Substance: NIRAPARIB
     Dosage: 200 MG, DAILY
     Route: 048
     Dates: start: 20190520, end: 20190604
  5. NIRAPARIB [Suspect]
     Active Substance: NIRAPARIB
     Dosage: 200 MG DAILY
     Route: 048
  6. NAPROXEN. [Concomitant]
     Active Substance: NAPROXEN
     Indication: ARTHRALGIA
     Dosage: UNK
  7. NIRAPARIB [Suspect]
     Active Substance: NIRAPARIB
     Dosage: 100 MG, QD
     Route: 048
     Dates: start: 20190702
  8. NIRAPARIB [Suspect]
     Active Substance: NIRAPARIB
     Dosage: 200 MG, QD
     Route: 048
     Dates: start: 20191220
  9. NIRAPARIB [Suspect]
     Active Substance: NIRAPARIB
     Indication: OVARIAN CANCER
     Dosage: 300 MG, QD
     Route: 048
     Dates: start: 20190503, end: 20190519

REACTIONS (31)
  - Neuropathy peripheral [Not Recovered/Not Resolved]
  - Glossitis [Not Recovered/Not Resolved]
  - Gingival erythema [Unknown]
  - Muscle spasms [Not Recovered/Not Resolved]
  - Migraine [Unknown]
  - Condition aggravated [Unknown]
  - Glossodynia [Not Recovered/Not Resolved]
  - Back pain [Recovering/Resolving]
  - Pain in extremity [Unknown]
  - Sciatica [Unknown]
  - Dysstasia [Unknown]
  - Dizziness [Unknown]
  - Hypophagia [Unknown]
  - Oral pain [Unknown]
  - Insomnia [Unknown]
  - Platelet count decreased [Not Recovered/Not Resolved]
  - Dry mouth [Unknown]
  - Product dose omission [Unknown]
  - Tongue discolouration [Unknown]
  - Arthritis [Unknown]
  - Arthralgia [Recovering/Resolving]
  - Fatigue [Unknown]
  - Stomatitis [Unknown]
  - Swollen tongue [Unknown]
  - Chapped lips [Unknown]
  - Muscular weakness [Unknown]
  - Gingival pain [Unknown]
  - Lip haemorrhage [Unknown]
  - Headache [Recovering/Resolving]
  - Bronchitis [Unknown]
  - Coating in mouth [Unknown]

NARRATIVE: CASE EVENT DATE: 20190501
